FAERS Safety Report 18387641 (Version 1)
Quarter: 2020Q4

REPORT INFORMATION
  Report Type: Spontaneous
  Country: US (occurrence: US)
  Receive Date: 20201015
  Receipt Date: 20201015
  Transmission Date: 20210114
  Serious: No
  Sender: FDA-Public Use
  Company Number: US-CASPER PHARMA LLC-2019CAS000554

PATIENT
  Sex: Male
  Weight: 67.12 kg

DRUGS (1)
  1. MECLIZINE HYDROCHLORIDE. [Suspect]
     Active Substance: MECLIZINE HYDROCHLORIDE
     Indication: VERTIGO
     Dosage: UNK
     Route: 065

REACTIONS (1)
  - Drug ineffective [Unknown]
